FAERS Safety Report 9085125 (Version 1)
Quarter: 2013Q1

REPORT INFORMATION
  Report Type: Spontaneous
  Country: US (occurrence: US)
  Receive Date: 20130130
  Receipt Date: 20130130
  Transmission Date: 20140127
  Serious: No
  Sender: FDA-Public Use
  Company Number: US-ABBOTT-12P-163-0988249-00

PATIENT
  Sex: 0

DRUGS (1)
  1. HUMIRA [Suspect]
     Indication: PRODUCT USED FOR UNKNOWN INDICATION

REACTIONS (6)
  - Incorrect product storage [Unknown]
  - Poor quality drug administered [Unknown]
  - Malaise [Unknown]
  - Lacrimation increased [Unknown]
  - Sneezing [Unknown]
  - Unevaluable event [Unknown]
